FAERS Safety Report 14122234 (Version 2)
Quarter: 2018Q1

REPORT INFORMATION
  Report Type: Spontaneous
  Country: US (occurrence: US)
  Receive Date: 20171024
  Receipt Date: 20180123
  Transmission Date: 20180508
  Serious: No
  Sender: FDA-Public Use
  Company Number: US-IMPAX LABORATORIES, INC-2017-IPXL-02299

PATIENT
  Sex: Female
  Weight: 44 kg

DRUGS (13)
  1. RYTARY [Suspect]
     Active Substance: CARBIDOPA\LEVODOPA
     Indication: PARKINSON^S DISEASE
     Dosage: UNK
     Route: 048
     Dates: start: 201706, end: 201706
  2. RYTARY [Suspect]
     Active Substance: CARBIDOPA\LEVODOPA
     Dosage: 23.75/95 MG 1CAPSULE WITH THE FIRST AND SECOND DOSE 48.75/195 MG
     Route: 048
     Dates: start: 2017
  3. CARBIDOPA/LEVODOPA [Concomitant]
     Active Substance: CARBIDOPA\LEVODOPA
     Indication: PARKINSON^S DISEASE
     Dosage: 2 TAB 4-5 TIMES/DAY
     Route: 065
     Dates: start: 201506
  4. CALCIUM [Concomitant]
     Active Substance: CALCIUM
     Indication: SUPPLEMENTATION THERAPY
     Dosage: UNK
     Route: 065
  5. CARBIDOPA/LEVODOPA [Concomitant]
     Active Substance: CARBIDOPA\LEVODOPA
     Dosage: HALF TABLET WITH RYTARY FIRST 2 DOSES, UNK
     Route: 065
  6. CARBIDOPA/LEVODOPA [Concomitant]
     Active Substance: CARBIDOPA\LEVODOPA
     Dosage: ADDED 1 TABLET IN HER DAY^S DOSE, UNK
     Route: 065
  7. RYTARY [Suspect]
     Active Substance: CARBIDOPA\LEVODOPA
     Dosage: TITRATED UP (23.75/95 MG 1 CAPSULE WITH EVERY DOSE, INCLUDING THIRD DOSE, 48.75/195 MG)
     Route: 048
     Dates: start: 2017, end: 2017
  8. RYTARY [Suspect]
     Active Substance: CARBIDOPA\LEVODOPA
     Dosage: 48.75/195 MG, 2 CAPSULES, 3 /DAY
     Route: 065
     Dates: start: 201706, end: 2017
  9. RYTARY [Suspect]
     Active Substance: CARBIDOPA\LEVODOPA
     Dosage: 48.75/195 MG, 2 CAPSULES, 3/DAY + 23.75 MG/95 MG, 1 CAPSULE WITH 1ST + 2ND DOSES 48.75/195 MG,
     Route: 048
     Dates: start: 2017
  10. RYTARY [Suspect]
     Active Substance: CARBIDOPA\LEVODOPA
     Dosage: 1 EXTRA CAPSULE 48.75/195 MG AS NEEDED AT 3AM+5AM
     Route: 048
  11. VITAMIN D [Concomitant]
     Active Substance: CHOLECALCIFEROL
     Indication: SUPPLEMENTATION THERAPY
     Dosage: UNK
     Route: 065
  12. PROBIOTIC [Concomitant]
     Active Substance: PROBIOTICS NOS
     Indication: SUPPLEMENTATION THERAPY
     Dosage: UNK
     Route: 065
  13. RYTARY [Suspect]
     Active Substance: CARBIDOPA\LEVODOPA
     Dosage: 48.75/195 MG, ONE CAPSULE
     Route: 048
     Dates: start: 20171008, end: 2017

REACTIONS (9)
  - Oropharyngeal pain [Recovered/Resolved]
  - Hypercholesterolaemia [Unknown]
  - Lethargy [Recovering/Resolving]
  - Weight decreased [Not Recovered/Not Resolved]
  - Therapeutic response shortened [Not Recovered/Not Resolved]
  - Tremor [Recovered/Resolved with Sequelae]
  - Cough [Recovering/Resolving]
  - Sinus congestion [Recovering/Resolving]
  - Drug effect incomplete [Not Recovered/Not Resolved]

NARRATIVE: CASE EVENT DATE: 2017
